FAERS Safety Report 25288320 (Version 1)
Quarter: 2025Q2

REPORT INFORMATION
  Report Type: Spontaneous
  Country: IT (occurrence: IT)
  Receive Date: 20250509
  Receipt Date: 20250509
  Transmission Date: 20250716
  Serious: Yes (Other)
  Sender: ORGANON
  Company Number: None

PATIENT
  Age: 73 Day
  Sex: Male

DRUGS (8)
  1. EZETIMIBE\SIMVASTATIN [Suspect]
     Active Substance: EZETIMIBE\SIMVASTATIN
     Indication: Hypercholesterolaemia
     Dosage: 10+10 TABLETS PER DAY
     Route: 048
     Dates: start: 202305, end: 20250409
  2. EZETIMIBE\ROSUVASTATIN CALCIUM [Suspect]
     Active Substance: EZETIMIBE\ROSUVASTATIN CALCIUM
     Dosage: 10+10 TABLETS PER DAY
     Route: 048
     Dates: start: 202307, end: 20250408
  3. BISOPROLOL FUMARATE [Concomitant]
     Active Substance: BISOPROLOL FUMARATE
     Dosage: 2.5 MG TABLETS PER DAY
     Route: 048
     Dates: start: 2023
  4. TICAGRELOR [Concomitant]
     Active Substance: TICAGRELOR
     Dosage: 60 MG ONE TABLET TWICE DAILY
     Dates: start: 202307
  5. ESOMEPRAZOLE [Concomitant]
     Active Substance: ESOMEPRAZOLE
     Dosage: 20 MG TABLETS PER DAY
     Route: 048
  6. CANRENOIC ACID [Concomitant]
     Active Substance: CANRENOIC ACID
     Dosage: 50 MG HALF TABLETS PER DAY
     Route: 048
  7. OLMESARTAN MEDOXOMIL [Concomitant]
     Active Substance: OLMESARTAN MEDOXOMIL
     Dosage: 10 TABLETS PER DAY
     Dates: start: 2023
  8. ASPIRIN [Concomitant]
     Active Substance: ASPIRIN
     Dosage: 100 MG TABLETS PER DAY
     Dates: start: 2023

REACTIONS (2)
  - Motor dysfunction [Recovering/Resolving]
  - Myalgia [Recovering/Resolving]

NARRATIVE: CASE EVENT DATE: 20240401
